FAERS Safety Report 5477858-0 (Version None)
Quarter: 2007Q4

REPORT INFORMATION
  Report Type: 
  Country: None (occurrence: None)
  Receive Date: 20071004
  Receipt Date: 20070920
  Transmission Date: 20080405
  Serious: No
  Sender: FDA-Public Use
  Company Number: US-BOEHRINGER INGELHEIM PHARMACEUTICALS, INC.-2007-BP-21469BP

PATIENT
  Age: 85 Year
  Sex: Male

DRUGS (3)
  1. SPIRIVA [Suspect]
     Indication: WHEEZING
     Route: 055
     Dates: start: 20070823, end: 20070917
  2. VASOTEC [Concomitant]
  3. DILTIAZEM [Concomitant]

REACTIONS (5)
  - COUGH [None]
  - DRY MOUTH [None]
  - DRY THROAT [None]
  - EPISTAXIS [None]
  - URINE FLOW DECREASED [None]
